FAERS Safety Report 8590475-9 (Version None)
Quarter: 2012Q3

REPORT INFORMATION
  Report Type: 
  Country: None (occurrence: None)
  Receive Date: 20120813
  Receipt Date: 20120809
  Transmission Date: 20120928
  Serious: Yes (Other)
  Sender: FDA-Public Use
  Company Number: US-PFIZER INC-2012150074

PATIENT
  Age: 42 Year
  Sex: Female
  Weight: 77.1 kg

DRUGS (4)
  1. GEODON [Suspect]
     Dosage: 20 MG, EVERY OTHER DAY
  2. ZIPRASIDONE HCL [Suspect]
     Indication: SCHIZOPHRENIA
     Dosage: 20 MG, UNK
     Route: 048
     Dates: start: 20120501, end: 20120501
  3. GEODON [Suspect]
     Indication: SCHIZOPHRENIA
     Dosage: 20 MG, UNK
     Route: 048
  4. TRAZODONE [Concomitant]
     Dosage: 50 MG, 1X/DAY

REACTIONS (6)
  - HEPATITIS C [None]
  - OROPHARYNGEAL PAIN [None]
  - APTYALISM [None]
  - DRY THROAT [None]
  - CONSTIPATION [None]
  - INAPPROPRIATE SCHEDULE OF DRUG ADMINISTRATION [None]
